FAERS Safety Report 9954593 (Version 2)
Quarter: 2014Q2

REPORT INFORMATION
  Report Type: Spontaneous
  Country: US (occurrence: US)
  Receive Date: 20140304
  Receipt Date: 20140401
  Transmission Date: 20141212
  Serious: Yes (Hospitalization, Other)
  Sender: FDA-Public Use
  Company Number: US-ELI_LILLY_AND_COMPANY-US201402007190

PATIENT
  Sex: Female

DRUGS (4)
  1. HUMALOG LISPRO [Suspect]
     Indication: DIABETES MELLITUS
     Dosage: 6 U, EACH MORNING
     Route: 065
     Dates: start: 1997
  2. HUMALOG LISPRO [Suspect]
     Dosage: 4 U, EACH EVENING
     Route: 065
     Dates: start: 1997
  3. LANTUS [Concomitant]
  4. VICTOZA [Concomitant]

REACTIONS (5)
  - Cardiac myxoma [Unknown]
  - Breast cancer [Unknown]
  - Nasopharyngitis [Unknown]
  - Epistaxis [Unknown]
  - Incorrect dose administered [Unknown]
